FAERS Safety Report 7756465-0 (Version None)
Quarter: 2011Q3

REPORT INFORMATION
  Report Type: 
  Country: None (occurrence: None)
  Receive Date: 20110901
  Receipt Date: 20110825
  Transmission Date: 20111222
  Serious: Yes (Other)
  Sender: FDA-Public Use
  Company Number: 2011029179

PATIENT
  Age: 50 Year
  Sex: Female
  Weight: 83.4619 kg

DRUGS (38)
  1. SEROQUEL XR (QUETIAPINE) [Concomitant]
  2. KLONOPIN [Concomitant]
  3. SYMBICORT [Concomitant]
  4. VICODIN [Concomitant]
  5. VITAMIN B12 [Concomitant]
  6. ASCORBIC ACID [Concomitant]
  7. FOSAMAX [Concomitant]
  8. SINGULAIR [Concomitant]
  9. CHLORZOXAZONE [Concomitant]
  10. PREDNISONE (PRAVASTATIN) [Concomitant]
  11. ALBUTEROL [Concomitant]
  12. THEOPHYLLINE [Concomitant]
  13. CALCIUM + D (OYSTER SHELL CALCIUM WITH VITAMIN D /01675501/) [Concomitant]
  14. GABAPENTIN [Concomitant]
  15. CELEXA [Concomitant]
  16. ATARAX [Concomitant]
  17. BACTRIM DS [Concomitant]
  18. HIZENTRA [Suspect]
  19. PROAIR (PROCATEROL HYDROCHLORIDE) [Concomitant]
  20. CIPRO [Concomitant]
  21. PROMETHAZINE [Concomitant]
  22. TESSALON [Concomitant]
  23. MAGNESIUM (MAGNESIUM) [Concomitant]
  24. OMEPRAZOLE [Concomitant]
  25. CELEBREX [Concomitant]
  26. RANITIDINE [Concomitant]
  27. OXYBUTYNIN [Concomitant]
  28. TREXIMET (SUMATRIPTAN) [Concomitant]
  29. IBUPROFEN [Concomitant]
  30. PREMPRO (PROVELLA-14) [Concomitant]
  31. HIZENTRA [Suspect]
     Indication: IMMUNODEFICIENCY COMMON VARIABLE
     Dosage: SEE IMAGE
     Route: 058
     Dates: start: 20110630
  32. HIZENTRA [Suspect]
     Indication: IMMUNODEFICIENCY COMMON VARIABLE
     Dosage: SEE IMAGE
     Route: 058
     Dates: start: 20110719
  33. HIZENTRA [Suspect]
     Indication: IMMUNODEFICIENCY COMMON VARIABLE
     Dosage: SEE IMAGE
     Route: 058
     Dates: start: 20101103
  34. FISH OIL (FISH OIL) [Concomitant]
  35. PRENATAL (PRENATAL /00231801/) [Concomitant]
  36. XYZAL [Concomitant]
  37. FLONASE [Concomitant]
  38. DIOVAN [Concomitant]

REACTIONS (2)
  - SINUSITIS [None]
  - KIDNEY INFECTION [None]
